FAERS Safety Report 8610997-1 (Version None)
Quarter: 2012Q3

REPORT INFORMATION
  Report Type: 
  Country: None (occurrence: None)
  Receive Date: 20120822
  Receipt Date: 20120814
  Transmission Date: 20120928
  Serious: Yes (Hospitalization)
  Sender: FDA-Public Use
  Company Number: NL-JNJFOC-20120804923

PATIENT
  Sex: Male
  Weight: 63 kg

DRUGS (4)
  1. PREDNISONE TAB [Concomitant]
  2. REMICADE [Suspect]
     Indication: CROHN'S DISEASE
     Route: 042
     Dates: start: 20091113
  3. HUMIRA [Concomitant]
     Dates: start: 20101222
  4. METHOTREXATE [Concomitant]

REACTIONS (1)
  - CROHN'S DISEASE [None]
